FAERS Safety Report 14881865 (Version 1)
Quarter: 2018Q2

REPORT INFORMATION
  Report Type: Spontaneous
  Country: FR (occurrence: FR)
  Receive Date: 20180511
  Receipt Date: 20180511
  Transmission Date: 20180711
  Serious: Yes (Hospitalization, Other)
  Sender: FDA-Public Use
  Company Number: FR-PFIZER INC-2018187817

PATIENT
  Age: 46 Year
  Sex: Male

DRUGS (7)
  1. OXYNORM [Suspect]
     Active Substance: OXYCODONE HYDROCHLORIDE
     Dosage: UNK
     Route: 048
     Dates: start: 2013, end: 2014
  2. SKENAN [Suspect]
     Active Substance: MORPHINE SULFATE
     Dosage: 80 MG, 1X/DAY
     Route: 048
     Dates: start: 2014
  3. ALPRAZOLAM. [Suspect]
     Active Substance: ALPRAZOLAM
     Dosage: UNK
     Route: 048
     Dates: start: 2013
  4. OXYCONTIN [Suspect]
     Active Substance: OXYCODONE HYDROCHLORIDE
     Dosage: UNK
     Route: 048
     Dates: start: 2013, end: 2014
  5. ACTISKENAN [Suspect]
     Active Substance: MORPHINE SULFATE
     Dosage: 30 MG, EVERY 4 HRS
     Route: 048
     Dates: start: 2014
  6. ALCOOL [Suspect]
     Active Substance: ALCOHOL
     Dosage: 10 IU, 1X/DAY (10 UNITS PER DAY)
     Route: 048
     Dates: start: 2007, end: 2012
  7. TOBACCO [Suspect]
     Active Substance: TOBACCO LEAF
     Dosage: 5 TO 10 CIGARETTES/DAY
     Route: 055
     Dates: start: 1989

REACTIONS (4)
  - Depressed level of consciousness [Recovered/Resolved]
  - Alcohol abuse [Recovered/Resolved]
  - Withdrawal syndrome [Recovered/Resolved]
  - Drug dependence [Not Recovered/Not Resolved]

NARRATIVE: CASE EVENT DATE: 2007
